FAERS Safety Report 7088399-1 (Version None)
Quarter: 2010Q4

REPORT INFORMATION
  Report Type: 
  Country: None (occurrence: None)
  Receive Date: 20101028
  Receipt Date: 20101013
  Transmission Date: 20110411
  Serious: Yes (Other)
  Sender: FDA-Public Use
  Company Number: 020530

PATIENT
  Sex: Female
  Weight: 58.9676 kg

DRUGS (2)
  1. CIMZIA [Suspect]
     Indication: CROHN'S DISEASE
     Dosage: (400 MG SUBCUTANEOUS)
     Route: 058
     Dates: start: 20091231
  2. CALCIUM WITH VITAMIN D [Concomitant]

REACTIONS (3)
  - BASAL CELL CARCINOMA [None]
  - BOWEN'S DISEASE [None]
  - SARCOMA [None]
